FAERS Safety Report 9900930 (Version 1)
Quarter: 2014Q1

REPORT INFORMATION
  Report Type: Spontaneous
  Country: US (occurrence: US)
  Receive Date: 20140217
  Receipt Date: 20140217
  Transmission Date: 20141002
  Serious: No
  Sender: FDA-Public Use
  Company Number: US-ABBVIE-13P-163-1060953-00

PATIENT
  Age: 48 Year
  Sex: Male
  Weight: 102.15 kg

DRUGS (2)
  1. SIMCOR 1000/20 [Suspect]
     Indication: HIGH DENSITY LIPOPROTEIN DECREASED
     Dosage: 1000/20MG, 1 IN 1 D, AT BEDTIME
     Dates: start: 201212
  2. FLUTICASONE [Concomitant]
     Indication: HYPERSENSITIVITY

REACTIONS (2)
  - Middle insomnia [Not Recovered/Not Resolved]
  - Flushing [Not Recovered/Not Resolved]
